FAERS Safety Report 9307638 (Version 1)
Quarter: 2013Q2

REPORT INFORMATION
  Report Type: Spontaneous
  Country: US (occurrence: US)
  Receive Date: 20130524
  Receipt Date: 20130524
  Transmission Date: 20140414
  Serious: Yes (Other)
  Sender: FDA-Public Use
  Company Number: US-BAYER-2013-063765

PATIENT
  Age: 32 Year
  Sex: Female

DRUGS (5)
  1. YAZ [Suspect]
  2. YASMIN [Suspect]
  3. ATIVAN [Concomitant]
  4. BENADRYL [Concomitant]
  5. PHENERGAN [Concomitant]

REACTIONS (1)
  - Deep vein thrombosis [None]
